FAERS Safety Report 8234649 (Version 3)
Quarter: 2014Q1

REPORT INFORMATION
  Report Type: Spontaneous
  Country: US (occurrence: US)
  Receive Date: 20111108
  Receipt Date: 20140225
  Transmission Date: 20141002
  Serious: Yes (Other)
  Sender: FDA-Public Use
  Company Number: US-BIOGENIDEC-2011BI041688

PATIENT
  Sex: Female

DRUGS (3)
  1. AVONEX [Suspect]
     Indication: MULTIPLE SCLEROSIS
     Route: 030
     Dates: start: 19970901
  2. AVONEX [Suspect]
     Indication: MULTIPLE SCLEROSIS
     Route: 030
     Dates: end: 20070808
  3. AVONEX [Suspect]
     Indication: MULTIPLE SCLEROSIS
     Route: 030
     Dates: start: 20071128

REACTIONS (9)
  - Pyrexia [Recovered/Resolved]
  - Hallucination [Recovered/Resolved]
  - Gait disturbance [Unknown]
  - Drug withdrawal syndrome [Not Recovered/Not Resolved]
  - Aphonia [Recovered/Resolved]
  - Hypersensitivity [Unknown]
  - Musculoskeletal pain [Not Recovered/Not Resolved]
  - Influenza like illness [Recovered/Resolved]
  - Muscular weakness [Recovered/Resolved]
